FAERS Safety Report 13368856 (Version 1)
Quarter: 2017Q1

REPORT INFORMATION
  Report Type: Spontaneous
  Country: GB (occurrence: GB)
  Receive Date: 20170324
  Receipt Date: 20170324
  Transmission Date: 20170429
  Serious: Yes (Hospitalization, Other)
  Sender: FDA-Public Use
  Company Number: PHHY2017GB038995

PATIENT
  Age: 23 Month
  Sex: Male
  Weight: 11 kg

DRUGS (1)
  1. AMOXICILLIN. [Suspect]
     Active Substance: AMOXICILLIN
     Indication: RESPIRATORY DISORDER
     Dosage: 250MG/5ML.
     Route: 048
     Dates: start: 20170220, end: 20170224

REACTIONS (2)
  - Pyrexia [Unknown]
  - Urticaria [Recovering/Resolving]

NARRATIVE: CASE EVENT DATE: 20170225
